FAERS Safety Report 18354058 (Version 1)
Quarter: 2020Q4

REPORT INFORMATION
  Report Type: Spontaneous
  Country: US (occurrence: US)
  Receive Date: 20201006
  Receipt Date: 20201006
  Transmission Date: 20210114
  Serious: Yes (Death)
  Sender: FDA-Public Use
  Company Number: None

PATIENT
  Age: 53 Year
  Sex: Female
  Weight: 129 kg

DRUGS (17)
  1. CEFEPIME 1GM IV Q8HR X2 DAYS THEN 1GM IV Q6HR [Concomitant]
     Dates: start: 20200704, end: 20200707
  2. MELATONIN 9MG PO QHS [Concomitant]
     Dates: start: 20200616, end: 20200624
  3. REMDESIVIR. [Suspect]
     Active Substance: REMDESIVIR
     Indication: COVID-19 PNEUMONIA
     Route: 042
     Dates: start: 20200612, end: 20200621
  4. VANCOMYCIN PER PROTOCOL [Concomitant]
     Dates: start: 20200612, end: 20200614
  5. INSULIN GLARGINE/LISPRO/REGULAR [Concomitant]
     Dates: start: 20200609, end: 20200708
  6. PREDNISONE 20MG PO ONCE [Concomitant]
     Dates: start: 20200609, end: 20200609
  7. CONVALESCENT PLASMA [Concomitant]
     Active Substance: HUMAN PLASMA
     Dates: start: 20200612, end: 20200612
  8. DEXAMETHASONE 10MG DAILY IV [Concomitant]
     Dates: start: 20200612, end: 20200616
  9. AZITHROMYCIN 500MG IV ONCE AND 500MG PO ONCE [Concomitant]
     Dates: start: 20200609, end: 20200610
  10. ENOXAPARIN 60MG SQ Q12HR [Concomitant]
     Dates: start: 20200612, end: 20200628
  11. VANCOMYCIN 2000MG IV ONCE [Concomitant]
     Dates: start: 20200707, end: 20200707
  12. CEFTRIAXONE 1GM IV ONCE [Concomitant]
     Dates: start: 20200609, end: 20200609
  13. DEXAMETHASONE 10MG DAILY IV [Concomitant]
     Dates: start: 20200622, end: 20200626
  14. ZINC SULFATE 220MG PO ONCE DAILY [Concomitant]
     Dates: start: 20200610, end: 20200630
  15. FAMOTIDINE 20MG IV BID X11 DAYS THEN 20MG PO BID X6 DAYS THEN IV [Concomitant]
     Dates: start: 20200611, end: 20200707
  16. HYDROXYCHLOROQUINE 400MG PO Q12HR X1 DAY, THEN 400MG PO DAILY [Concomitant]
     Dates: start: 20200610, end: 20200614
  17. MEROPENEM 1 GM IV Q8HR [Concomitant]
     Dates: start: 20200707, end: 20200708

REACTIONS (17)
  - Acute kidney injury [None]
  - Blood potassium increased [None]
  - Acidosis [None]
  - Hyperkalaemia [None]
  - Haemodialysis [None]
  - Respiratory failure [None]
  - Blood lactic acid increased [None]
  - Blood creatine increased [None]
  - Acute cardiac event [None]
  - Hyperlipidaemia [None]
  - Blood phosphorus increased [None]
  - Depression [None]
  - Hypertension [None]
  - Blood glucose increased [None]
  - Blood magnesium increased [None]
  - Carbon dioxide decreased [None]
  - Blood urea increased [None]

NARRATIVE: CASE EVENT DATE: 20200708
